FAERS Safety Report 9003612 (Version 1)
Quarter: 2013Q1

REPORT INFORMATION
  Report Type: Spontaneous
  Country: FR (occurrence: FR)
  Receive Date: 20130108
  Receipt Date: 20130108
  Transmission Date: 20140127
  Serious: Yes (Disabling)
  Sender: FDA-Public Use
  Company Number: FR-PFIZER INC-2012329348

PATIENT
  Sex: Male

DRUGS (1)
  1. CYTOTEC [Suspect]
     Indication: LABOUR INDUCTION
     Dosage: 1/4 OF TABLET, SINGLE
     Route: 064

REACTIONS (2)
  - Maternal exposure timing unspecified [Unknown]
  - Nervous system disorder [Unknown]
